FAERS Safety Report 7927182-9 (Version None)
Quarter: 2011Q4

REPORT INFORMATION
  Report Type: 
  Country: None (occurrence: None)
  Receive Date: 20111116
  Receipt Date: 20111102
  Transmission Date: 20120403
  Serious: Yes (Hospitalization)
  Sender: FDA-Public Use
  Company Number: DSM-2011-01028

PATIENT
  Age: 60 Year
  Sex: Male

DRUGS (8)
  1. CIPROFLOXACIN [Concomitant]
  2. AXELER (OLMESARTAN MEDOXOMIL, AMLODIPINE BESILATE) (TABLET) (OLMESARTA [Suspect]
     Indication: PRODUCT USED FOR UNKNOWN INDICATION
     Dosage: ORAL
     Route: 048
     Dates: end: 20110928
  3. IBUPROFEN (ADVIL) [Suspect]
     Indication: PRODUCT USED FOR UNKNOWN INDICATION
     Dosage: ORAL
     Route: 048
     Dates: start: 20110919, end: 20110924
  4. NEBIVOLOL HCL [Concomitant]
  5. GEMFIBROZIL [Concomitant]
  6. CEFPODOXIME PROXETIL [Concomitant]
  7. INDAPAMIDE [Suspect]
     Indication: PRODUCT USED FOR UNKNOWN INDICATION
     Dosage: 1.5 MG, ORAL
     Route: 048
     Dates: end: 20110928
  8. GLUCOPHAGE [Concomitant]

REACTIONS (5)
  - LIPASE INCREASED [None]
  - INFLAMMATION [None]
  - RENAL FAILURE ACUTE [None]
  - PYREXIA [None]
  - GENERAL PHYSICAL HEALTH DETERIORATION [None]
